FAERS Safety Report 11158021 (Version 2)
Quarter: 2015Q2

REPORT INFORMATION
  Report Type: Spontaneous
  Country: BR (occurrence: BR)
  Receive Date: 20150603
  Receipt Date: 20150629
  Transmission Date: 20150821
  Serious: Yes (Hospitalization, Other)
  Sender: FDA-Public Use
  Company Number: BR-ELI_LILLY_AND_COMPANY-BR201505008558

PATIENT
  Age: 22 Year
  Sex: Female
  Weight: 62 kg

DRUGS (4)
  1. HUMULIN N [Suspect]
     Active Substance: INSULIN HUMAN
     Indication: TYPE 1 DIABETES MELLITUS
     Dosage: 3.5 IU, UNKNOWN
     Route: 058
     Dates: start: 201012
  2. HUMULIN N [Suspect]
     Active Substance: INSULIN HUMAN
     Indication: GESTATIONAL DIABETES
     Dosage: 25 IU, EACH MORNING
     Route: 058
     Dates: start: 201406
  3. OMEPRAZOLE. [Concomitant]
     Active Substance: OMEPRAZOLE
     Indication: ABDOMINAL PAIN UPPER
     Dosage: 40 MG, UNKNOWN
  4. HUMULIN N [Suspect]
     Active Substance: INSULIN HUMAN
     Dosage: 15 IU, EACH EVENING
     Route: 058
     Dates: start: 201406

REACTIONS (14)
  - Diabetic ketoacidosis [Unknown]
  - Blood potassium decreased [Unknown]
  - Hyperglycaemia [Unknown]
  - Epistaxis [Unknown]
  - Liver disorder [Unknown]
  - Urinary tract infection [Unknown]
  - Coagulopathy [Unknown]
  - Blood glucose increased [Unknown]
  - Neuropathy peripheral [Unknown]
  - Pancreatic disorder [Unknown]
  - Visual impairment [Unknown]
  - Diabetes mellitus [Unknown]
  - Renal disorder [Unknown]
  - Drug ineffective [Unknown]

NARRATIVE: CASE EVENT DATE: 201406
